FAERS Safety Report 10197224 (Version 2)
Quarter: 2015Q4

REPORT INFORMATION
  Report Type: Spontaneous
  Country: US (occurrence: US)
  Receive Date: 20140527
  Receipt Date: 20151016
  Transmission Date: 20160304
  Serious: Yes (Hospitalization, Other)
  Sender: FDA-Public Use
  Company Number: US-GLAXOSMITHKLINE-A1074435A

PATIENT
  Sex: Male

DRUGS (2)
  1. ADVAIR HFA [Suspect]
     Active Substance: FLUTICASONE PROPIONATE\SALMETEROL XINAFOATE
     Indication: DYSPNOEA
     Dosage: UNK UNK, U
     Route: 065
     Dates: start: 20110520
  2. ADVAIR HFA [Suspect]
     Active Substance: FLUTICASONE PROPIONATE\SALMETEROL XINAFOATE
     Dosage: UNK
     Dates: start: 2012

REACTIONS (8)
  - Dyspnoea [Unknown]
  - Tremor [Unknown]
  - Pneumonia [Unknown]
  - Activities of daily living impaired [Unknown]
  - Oxygen supplementation [Unknown]
  - Hospitalisation [Unknown]
  - Lung infection [Unknown]
  - Memory impairment [Unknown]
